FAERS Safety Report 5908037-8 (Version None)
Quarter: 2008Q4

REPORT INFORMATION
  Report Type: 
  Country: None (occurrence: None)
  Receive Date: 20081003
  Receipt Date: 20080929
  Transmission Date: 20090506
  Serious: Yes (Hospitalization)
  Sender: FDA-Public Use
  Company Number: US-B.I. PHARMACEUTICALS,INC./RIDGEFIELD-2008-BP-15143BP

PATIENT
  Sex: Male

DRUGS (1)
  1. SPIRIVA [Suspect]
     Indication: EMPHYSEMA
     Dosage: 18MCG
     Route: 055
     Dates: start: 20060101

REACTIONS (5)
  - ATRIAL FIBRILLATION [None]
  - DRY THROAT [None]
  - DYSPNOEA [None]
  - MACULAR DEGENERATION [None]
  - URINARY TRACT INFECTION [None]
